FAERS Safety Report 7201825-X (Version None)
Quarter: 2010Q4

REPORT INFORMATION
  Report Type: 
  Country: None (occurrence: None)
  Receive Date: 20101229
  Receipt Date: 20100823
  Transmission Date: 20110411
  Serious: Yes (Life-Threatening, Hospitalization, Other)
  Sender: FDA-Public Use
  Company Number: US-BAYER-200929748NA

PATIENT
  Sex: Female
  Weight: 61 kg

DRUGS (5)
  1. YAZ [Suspect]
     Indication: ORAL CONTRACEPTION
     Route: 048
     Dates: start: 20070101, end: 20070801
  2. ADVIL [Concomitant]
  3. UNCODEABLE ^UNCLASSIFIABLE^ [Concomitant]
  4. CIPRO [Concomitant]
     Indication: URINARY TRACT INFECTION
  5. ANTIBIOTICS [Concomitant]
     Indication: URINARY TRACT INFECTION

REACTIONS (6)
  - ALOPECIA [None]
  - CHEST PAIN [None]
  - MONONUCLEOSIS SYNDROME [None]
  - PAIN IN EXTREMITY [None]
  - PALPITATIONS [None]
  - PULMONARY EMBOLISM [None]
